FAERS Safety Report 21642339 (Version 1)
Quarter: 2022Q4

REPORT INFORMATION
  Report Type: Spontaneous
  Country: CN (occurrence: CN)
  Receive Date: 20221125
  Receipt Date: 20221125
  Transmission Date: 20230113
  Serious: Yes (Other)
  Sender: FDA-Public Use
  Company Number: CN-AstraZeneca-2022A383368

PATIENT

DRUGS (5)
  1. ZOLADEX [Suspect]
     Active Substance: GOSERELIN ACETATE
     Indication: Prostate cancer
     Dosage: UNK
     Route: 058
  2. ZOLADEX [Suspect]
     Active Substance: GOSERELIN ACETATE
     Indication: Prostate cancer
     Dosage: UNK
     Route: 065
  3. CASODEX [Suspect]
     Active Substance: BICALUTAMIDE
     Indication: Prostate cancer
     Dosage: UNK
     Route: 048
  4. CRESTOR [Suspect]
     Active Substance: ROSUVASTATIN CALCIUM
     Indication: Carotid arteriosclerosis
     Dosage: UNK
     Route: 048
  5. CRESTOR [Suspect]
     Active Substance: ROSUVASTATIN CALCIUM
     Indication: Cerebral arteriosclerosis

REACTIONS (12)
  - Vertebral artery occlusion [Unknown]
  - Cerebral vascular occlusion [Unknown]
  - Carotid arteriosclerosis [Unknown]
  - Cerebral arteriosclerosis [Unknown]
  - Abdominal distension [Unknown]
  - Exercise tolerance decreased [Unknown]
  - Dizziness [Unknown]
  - Blood pressure increased [Unknown]
  - Flushing [Unknown]
  - Hyperhidrosis [Unknown]
  - Arthralgia [Unknown]
  - Weight increased [Unknown]
